FAERS Safety Report 19942364 (Version 1)
Quarter: 2021Q4

REPORT INFORMATION
  Report Type: Spontaneous
  Country: US (occurrence: US)
  Receive Date: 20211011
  Receipt Date: 20211011
  Transmission Date: 20220303
  Serious: Yes (unspecified)
  Sender: FDA-Public Use
  Company Number: None

PATIENT
  Age: 55 Year
  Sex: Female
  Weight: 72 kg

DRUGS (7)
  1. ORBACTIV [Suspect]
     Active Substance: ORITAVANCIN
     Indication: Osteomyelitis
     Dosage: ?          OTHER FREQUENCY:WEEKLY;
     Route: 042
     Dates: start: 20211008, end: 20211011
  2. ORBACTIV [Suspect]
     Active Substance: ORITAVANCIN
     Indication: Intervertebral disc disorder
  3. DOXEPIN [Concomitant]
     Active Substance: DOXEPIN
  4. GABAPENTIN [Concomitant]
     Active Substance: GABAPENTIN
  5. ZANAFLEX [Concomitant]
     Active Substance: TIZANIDINE HYDROCHLORIDE
  6. OXYCONTIN [Concomitant]
     Active Substance: OXYCODONE HYDROCHLORIDE
  7. LEXAPRO [Concomitant]
     Active Substance: ESCITALOPRAM OXALATE

REACTIONS (4)
  - Nausea [None]
  - Vomiting [None]
  - Pain [None]
  - Vomiting [None]

NARRATIVE: CASE EVENT DATE: 20211009
